FAERS Safety Report 13922270 (Version 1)
Quarter: 2017Q3

REPORT INFORMATION
  Report Type: Spontaneous
  Country: JP (occurrence: JP)
  Receive Date: 20170830
  Receipt Date: 20170830
  Transmission Date: 20171127
  Serious: Yes (Other)
  Sender: FDA-Public Use
  Company Number: JP-G+W LABS-GW2017JP000239

PATIENT

DRUGS (5)
  1. METRONIDAZOLE. [Suspect]
     Active Substance: METRONIDAZOLE
     Indication: HELICOBACTER INFECTION
     Dosage: 500 MG, UNK
     Dates: start: 201507
  2. AMOXICILLIN. [Suspect]
     Active Substance: AMOXICILLIN
     Indication: HELICOBACTER INFECTION
     Dosage: 1500 MG, UNK
     Route: 065
     Dates: start: 201412
  3. VONOPRAZAN [Concomitant]
     Active Substance: VONOPRAZAN
     Indication: HELICOBACTER INFECTION
     Dosage: 40 MG, UNK
     Route: 065
     Dates: start: 201507
  4. AMOXICILLIN. [Suspect]
     Active Substance: AMOXICILLIN
     Dosage: 1500 MG, UNK
     Route: 065
     Dates: start: 201507
  5. PREDNISOLONE. [Concomitant]
     Active Substance: PREDNISOLONE
     Indication: SYSTEMIC LUPUS ERYTHEMATOSUS
     Dosage: 5 MG, UNK
     Route: 065

REACTIONS (1)
  - Enterocolitis haemorrhagic [Recovering/Resolving]
